FAERS Safety Report 7720727-3 (Version None)
Quarter: 2011Q3

REPORT INFORMATION
  Report Type: 
  Country: None (occurrence: None)
  Receive Date: 20110831
  Receipt Date: 20110819
  Transmission Date: 20111222
  Serious: Yes (Hospitalization, Other)
  Sender: FDA-Public Use
  Company Number: ES-JNJFOC-20110602173

PATIENT
  Age: 71 Year
  Sex: Female
  Weight: 73 kg

DRUGS (6)
  1. LERZAM [Concomitant]
     Indication: HYPERTENSION
     Route: 048
     Dates: start: 20101108
  2. CEMIDON [Concomitant]
     Indication: ANTIBIOTIC PROPHYLAXIS
     Route: 048
     Dates: start: 20101222
  3. CLOPIDOGREL [Concomitant]
     Route: 048
     Dates: start: 20081008
  4. CARDURA [Concomitant]
     Indication: HYPERTENSION
     Route: 048
  5. GOLIMUMAB [Suspect]
     Indication: RHEUMATOID ARTHRITIS
     Route: 058
     Dates: start: 20101222, end: 20110322
  6. KALPRESS PLUS [Concomitant]
     Indication: HYPERTENSION
     Route: 048

REACTIONS (3)
  - INFECTED SKIN ULCER [None]
  - PERIPHERAL ISCHAEMIA [None]
  - RENAL FAILURE [None]
